FAERS Safety Report 10634142 (Version 1)
Quarter: 2014Q4

REPORT INFORMATION
  Report Type: Spontaneous
  Country: US (occurrence: None)
  Receive Date: 20141203
  Receipt Date: 20141203
  Transmission Date: 20150529
  Serious: Yes (Other)
  Sender: FDA-Public Use
  Company Number: None

PATIENT
  Age: 65 Year
  Sex: Female

DRUGS (14)
  1. PREDNISONE. [Concomitant]
     Active Substance: PREDNISONE
  2. CALCIUM + VIT. D [Concomitant]
  3. COQ10 [Concomitant]
     Active Substance: UBIDECARENONE
  4. METFORMIN [Concomitant]
     Active Substance: METFORMIN HYDROCHLORIDE
  5. VITAMIN B [Concomitant]
     Active Substance: VITAMIN B
  6. METHOTREXATE [Concomitant]
     Active Substance: METHOTREXATE
  7. XELJANZ [Suspect]
     Active Substance: TOFACITINIB CITRATE
     Indication: RHEUMATOID ARTHRITIS
     Route: 048
     Dates: start: 20140305, end: 201411
  8. PLAQUENIL [Concomitant]
     Active Substance: HYDROXYCHLOROQUINE SULFATE
  9. VITAMIN E [Concomitant]
     Active Substance: .ALPHA.-TOCOPHEROL
  10. FOLIC ACID. [Concomitant]
     Active Substance: FOLIC ACID
  11. GABAPENTIN. [Concomitant]
     Active Substance: GABAPENTIN
  12. VITAMIN D [Concomitant]
     Active Substance: CHOLECALCIFEROL
  13. VITAMIN C [Concomitant]
     Active Substance: ASCORBIC ACID
  14. FISH OIL [Concomitant]
     Active Substance: FISH OIL

REACTIONS (2)
  - Therapeutic response delayed [None]
  - Swelling [None]

NARRATIVE: CASE EVENT DATE: 201411
